FAERS Safety Report 5753441-4 (Version None)
Quarter: 2008Q2

REPORT INFORMATION
  Report Type: 
  Country: None (occurrence: None)
  Receive Date: 20080530
  Receipt Date: 20080526
  Transmission Date: 20081010
  Serious: Yes (Life-Threatening)
  Sender: FDA-Public Use
  Company Number: IT-NOVOPROD-275698

PATIENT
  Sex: Female

DRUGS (8)
  1. LEVEMIR [Suspect]
     Indication: DIABETES MELLITUS
     Dosage: 1 IU, QD
     Dates: start: 20080515, end: 20080520
  2. LEVEMIR [Suspect]
  3. MONOKET [Concomitant]
     Dosage: 40 MG, UNK
  4. CARDURA                            /00639301/ [Concomitant]
     Dosage: 4 MG, UNK
  5. ALTIAZEM [Concomitant]
     Dosage: 60 MG, UNK
  6. KARVEZIDE [Concomitant]
     Dosage: 300 MG, UNK
  7. KARVEA [Concomitant]
     Dosage: 300 MG, UNK
  8. RANIDIL [Concomitant]
     Dosage: 150 MG, UNK

REACTIONS (2)
  - DYSPNOEA [None]
  - SKIN REACTION [None]
